FAERS Safety Report 9373030 (Version 1)
Quarter: 2013Q2

REPORT INFORMATION
  Report Type: Spontaneous
  Country: DE (occurrence: None)
  Receive Date: 20130624
  Receipt Date: 20130624
  Transmission Date: 20140414
  Serious: Yes (Hospitalization)
  Sender: FDA-Public Use
  Company Number: B0900836A

PATIENT
  Age: 62 Year
  Sex: Female

DRUGS (1)
  1. PAZOPANIB [Suspect]
     Indication: METASTATIC RENAL CELL CARCINOMA

REACTIONS (6)
  - Posterior reversible encephalopathy syndrome [None]
  - Headache [None]
  - Grand mal convulsion [None]
  - Paresis [None]
  - Nausea [None]
  - Metastases to meninges [None]
